FAERS Safety Report 5070382-9 (Version None)
Quarter: 2006Q3

REPORT INFORMATION
  Report Type: 
  Country: None (occurrence: None)
  Receive Date: 20060731
  Receipt Date: 20060719
  Transmission Date: 20061208
  Serious: Yes (Other)
  Sender: FDA-Public Use
  Company Number: 060724-0000713

PATIENT

DRUGS (4)
  1. COSMOGEN (DACTINOMYCIN FOR INJECTION) [Suspect]
     Indication: MALIGNANT SOFT TISSUE NEOPLASM
     Dosage: IV
     Route: 042
     Dates: start: 19960101, end: 19960101
  2. VINCRISTINE SULFATE [Suspect]
     Indication: MALIGNANT SOFT TISSUE NEOPLASM
     Dosage: IV
     Route: 042
     Dates: start: 19960101, end: 19960101
  3. IFOSFAMIDE [Suspect]
     Indication: MALIGNANT SOFT TISSUE NEOPLASM
     Dosage: IV
     Route: 042
     Dates: start: 19960101, end: 19960101
  4. DOXORUBICIN HCL [Suspect]
     Indication: MALIGNANT SOFT TISSUE NEOPLASM
     Dosage: IV
     Route: 042
     Dates: start: 19960101, end: 19960101

REACTIONS (1)
  - ANGIOPATHY [None]
